FAERS Safety Report 7943556-4 (Version None)
Quarter: 2011Q4

REPORT INFORMATION
  Report Type: 
  Country: None (occurrence: None)
  Receive Date: 20111128
  Receipt Date: 20111121
  Transmission Date: 20120403
  Serious: Yes (Other)
  Sender: FDA-Public Use
  Company Number: PHHY2011GB101876

PATIENT
  Age: 57 Year
  Sex: Female
  Weight: 87 kg

DRUGS (4)
  1. CANDESARTAN CILEXETIL [Concomitant]
     Dates: start: 20110905
  2. CO-DYDRAMOL [Concomitant]
     Dates: start: 20111108
  3. PRAVASTATIN [Suspect]
     Dates: start: 20111005
  4. ZOPICLONE [Concomitant]
     Dates: start: 20111111

REACTIONS (2)
  - DIZZINESS [None]
  - HYPERHIDROSIS [None]
